FAERS Safety Report 5894355-9 (Version None)
Quarter: 2008Q3

REPORT INFORMATION
  Report Type: 
  Country: None (occurrence: None)
  Receive Date: 20080922
  Receipt Date: 20080908
  Transmission Date: 20090109
  Serious: No
  Sender: FDA-Public Use
  Company Number: 237695J08USA

PATIENT
  Age: 55 Year
  Sex: Female
  Weight: 86.1834 kg

DRUGS (2)
  1. REBIF [Suspect]
     Indication: MULTIPLE SCLEROSIS
  2. BRONCHITIS MEDICATION (ALL OTHER THERAPEUTIC PRODUCTS) [Suspect]
     Indication: BRONCHITIS

REACTIONS (1)
  - NO ADVERSE EVENT [None]
